FAERS Safety Report 4470768-7 (Version None)
Quarter: 2004Q4

REPORT INFORMATION
  Report Type: 
  Country: None (occurrence: None)
  Receive Date: 20041006
  Receipt Date: 20041006
  Transmission Date: 20050328
  Serious: Yes (Hospitalization)
  Sender: FDA-Public Use
  Company Number: None

PATIENT
  Sex: Female
  Weight: 79.8331 kg

DRUGS (5)
  1. ALL-TRANS-RETINOLC ACID 90 MG/DAY IN DIVIDED D. [Suspect]
     Indication: ACUTE PROMYELOCYTIC LEUKAEMIA
     Dosage: 90 MG Q DAY IN DIV. BUCCAL
     Route: 002
     Dates: start: 20030210, end: 20030224
  2. CLARITIN [Concomitant]
  3. COMPAZINE [Concomitant]
  4. ATIVAN [Concomitant]
  5. OXYCODONE HCL [Concomitant]

REACTIONS (1)
  - CHOLELITHIASIS [None]
